FAERS Safety Report 8270915-5 (Version None)
Quarter: 2012Q2

REPORT INFORMATION
  Report Type: 
  Country: None (occurrence: None)
  Receive Date: 20120410
  Receipt Date: 20120403
  Transmission Date: 20120825
  Serious: No
  Sender: FDA-Public Use
  Company Number: US-PFIZER INC-2012085452

PATIENT
  Sex: Female
  Weight: 76.644 kg

DRUGS (7)
  1. AMBIEN [Concomitant]
     Indication: INSOMNIA
     Dosage: 10 MG, AS NEEDED
  2. EFFEXOR [Suspect]
     Indication: HOT FLUSH
  3. XANAX [Suspect]
     Dosage: 1 MG, 3X/DAY
     Dates: start: 19990101
  4. WELLBUTRIN [Concomitant]
     Dosage: UNK
     Dates: end: 20110101
  5. EFFEXOR [Suspect]
     Indication: MENOPAUSE
     Dosage: UNK
     Dates: start: 20050101
  6. ZYRTEC [Concomitant]
     Indication: HYPERSENSITIVITY
     Dosage: 10 MG, DAILY
  7. XANAX [Suspect]
     Dosage: UNK

REACTIONS (2)
  - IMPULSE-CONTROL DISORDER [None]
  - THINKING ABNORMAL [None]
